FAERS Safety Report 17235726 (Version 1)
Quarter: 2020Q1

REPORT INFORMATION
  Report Type: Spontaneous
  Country: US (occurrence: US)
  Receive Date: 20200106
  Receipt Date: 20200106
  Transmission Date: 20200409
  Serious: No
  Sender: FDA-Public Use
  Company Number: US-AUROBINDO-AUR-APL-2019-029557

PATIENT

DRUGS (1)
  1. CEPHALEXIN CAPSULES USP 500 MG [Suspect]
     Active Substance: CEPHALEXIN
     Indication: URINARY TRACT INFECTION
     Dosage: UNK, ONE CAPSULE BEFORE SLEEP AND OTHER IN MIDDLE OF THE NIGHT FOR 5 DAYS
     Route: 065
     Dates: start: 20190510

REACTIONS (2)
  - Extra dose administered [Unknown]
  - Bladder pain [Recovered/Resolved]
